FAERS Safety Report 12234332 (Version 1)
Quarter: 2016Q2

REPORT INFORMATION
  Report Type: Spontaneous
  Country: US (occurrence: None)
  Receive Date: 20160401
  Receipt Date: 20160401
  Transmission Date: 20160815
  Serious: Yes (Other)
  Sender: FDA-Public Use
  Company Number: None

PATIENT
  Age: 62 Year
  Sex: Male

DRUGS (1)
  1. STELARA [Suspect]
     Active Substance: USTEKINUMAB
     Indication: PROSTATIC SPECIFIC ANTIGEN
     Dosage: 45MG EVERY 12 WEEKS SQ??2 WEEKS AGO TO CURRENT
     Route: 058

REACTIONS (1)
  - Weight increased [None]
